FAERS Safety Report 4506873-6 (Version None)
Quarter: 2004Q4

REPORT INFORMATION
  Report Type: 
  Country: None (occurrence: None)
  Receive Date: 20041117
  Receipt Date: 20041105
  Transmission Date: 20050328
  Serious: Yes (Death)
  Sender: FDA-Public Use
  Company Number: 2004-00759

PATIENT
  Age: 65 Year
  Sex: Female

DRUGS (2)
  1. VELCADE [Suspect]
     Indication: MULTIPLE MYELOMA
  2. THALIDOMIDE (THALIDOMIDE) [Concomitant]
     Indication: MULTIPLE MYELOMA
     Dosage: 50.00 MG, QD, ORAL
     Route: 048
     Dates: start: 20040319, end: 20040714

REACTIONS (2)
  - ANOXIC ENCEPHALOPATHY [None]
  - STATUS EPILEPTICUS [None]
